FAERS Safety Report 10416113 (Version 1)
Quarter: 2014Q3

REPORT INFORMATION
  Report Type: Spontaneous
  Country: US (occurrence: None)
  Receive Date: 20140827
  Receipt Date: 20140827
  Transmission Date: 20150326
  Serious: Yes (Disabling, Other)
  Sender: FDA-Public Use
  Company Number: None

PATIENT
  Age: 33 Year
  Sex: Male
  Weight: 61.24 kg

DRUGS (1)
  1. SERTRALINE [Suspect]
     Active Substance: SERTRALINE HYDROCHLORIDE
     Indication: OBSESSIVE-COMPULSIVE DISORDER
     Dosage: 1 PILL DAILY, ONCE DAILY, TAKEN BY MOUTH
     Route: 048

REACTIONS (3)
  - Hypersomnia [None]
  - Paraesthesia [None]
  - Depression [None]

NARRATIVE: CASE EVENT DATE: 20140805
